FAERS Safety Report 14875000 (Version 1)
Quarter: 2018Q2

REPORT INFORMATION
  Report Type: Spontaneous
  Country: CN (occurrence: CN)
  Receive Date: 20180510
  Receipt Date: 20180510
  Transmission Date: 20180711
  Serious: Yes (Other)
  Sender: FDA-Public Use
  Company Number: CN-SA-2018SA129593

PATIENT
  Age: 79 Year
  Sex: Male
  Weight: 50 kg

DRUGS (4)
  1. CLEXANE [Suspect]
     Active Substance: ENOXAPARIN SODIUM
     Indication: PULMONARY EMBOLISM
     Route: 058
     Dates: start: 20180227, end: 20180304
  2. WARFARIN SODIUM. [Suspect]
     Active Substance: WARFARIN SODIUM
     Indication: PULMONARY EMBOLISM
     Route: 048
     Dates: start: 20180301, end: 20180305
  3. ASPIRIN. [Concomitant]
     Active Substance: ASPIRIN
     Dosage: ENTERIC-COATED TABLETS
     Route: 048
     Dates: start: 20180226, end: 20180306
  4. CLOPIDOGREL HYDROGEN SULFATE [Concomitant]
     Active Substance: CLOPIDOGREL BISULFATE
     Indication: CORONARY ARTERY DISEASE
     Route: 048
     Dates: start: 20180226, end: 20180302

REACTIONS (2)
  - Coagulation time prolonged [Recovering/Resolving]
  - Haemoptysis [Recovering/Resolving]

NARRATIVE: CASE EVENT DATE: 20180301
